FAERS Safety Report 4368467-5 (Version None)
Quarter: 2004Q2

REPORT INFORMATION
  Report Type: 
  Country: None (occurrence: None)
  Receive Date: 20040528
  Receipt Date: 20040521
  Transmission Date: 20050107
  Serious: Yes (Hospitalization)
  Sender: FDA-Public Use
  Company Number: TCI2004A00784

PATIENT
  Age: 74 Year
  Sex: Male

DRUGS (5)
  1. LANSAP 400 (LANSOPRAZOLE, CLARITHROMYCIN, AMOXICILLIN) (PREPARATION FO [Suspect]
     Indication: HELICOBACTER INFECTION
     Dosage: 1 CARD (0.5 CARD, 2 IN 1 D)
     Route: 048
     Dates: start: 20031220, end: 20031225
  2. DIAZEPAM [Concomitant]
  3. ADALAT CC [Concomitant]
  4. HARNAL (TAMSULOSIN HYDROCHLORIDE) [Concomitant]
  5. LIPITOR [Concomitant]

REACTIONS (3)
  - ANURIA [None]
  - CONSTIPATION [None]
  - RENAL FAILURE ACUTE [None]
